FAERS Safety Report 23026855 (Version 1)
Quarter: 2023Q4

REPORT INFORMATION
  Report Type: Spontaneous
  Country: AU (occurrence: AU)
  Receive Date: 20231004
  Receipt Date: 20231004
  Transmission Date: 20240109
  Serious: Yes (Other)
  Sender: FDA-Public Use
  Company Number: AU-BAUSCHBL-2023BNL009147

PATIENT
  Age: 55 Year
  Sex: Male

DRUGS (8)
  1. PREDNISOLONE [Suspect]
     Active Substance: PREDNISOLONE
     Indication: Product used for unknown indication
     Route: 065
  2. ENTYVIO [Suspect]
     Active Substance: VEDOLIZUMAB
     Indication: Product used for unknown indication
     Route: 065
  3. ADALIMUMAB [Suspect]
     Active Substance: ADALIMUMAB
     Indication: Product used for unknown indication
     Route: 065
  4. USTEKINUMAB [Suspect]
     Active Substance: USTEKINUMAB
     Indication: Product used for unknown indication
     Route: 065
  5. AZATHIOPRINE [Suspect]
     Active Substance: AZATHIOPRINE
     Indication: Product used for unknown indication
     Route: 065
  6. BUDESONIDE [Suspect]
     Active Substance: BUDESONIDE
     Indication: Product used for unknown indication
     Route: 065
  7. MESALAMINE [Suspect]
     Active Substance: MESALAMINE
     Indication: Product used for unknown indication
     Route: 065
  8. UPADACITINIB HEMIHYDRATE [Suspect]
     Active Substance: UPADACITINIB HEMIHYDRATE
     Indication: Product used for unknown indication
     Route: 065

REACTIONS (8)
  - Crohn^s disease [Unknown]
  - Tubulointerstitial nephritis [Unknown]
  - Osteoporosis [Unknown]
  - Sinusitis [Unknown]
  - Spondyloarthropathy [Unknown]
  - Drug intolerance [Unknown]
  - Loss of therapeutic response [Unknown]
  - Off label use [Unknown]
